FAERS Safety Report 8236255-5 (Version None)
Quarter: 2012Q1

REPORT INFORMATION
  Report Type: 
  Country: None (occurrence: None)
  Receive Date: 20120326
  Receipt Date: 20120326
  Transmission Date: 20120608
  Serious: No
  Sender: FDA-Public Use
  Company Number: None

PATIENT
  Age: 16 Year
  Sex: Female
  Weight: 68.0396 kg

DRUGS (1)
  1. CHLORAPREP [Suspect]

REACTIONS (3)
  - APPLICATION SITE PAIN [None]
  - APPLICATION SITE BLEEDING [None]
  - APPLICATION SITE EROSION [None]
